FAERS Safety Report 5131514-7 (Version None)
Quarter: 2006Q4

REPORT INFORMATION
  Report Type: 
  Country: None (occurrence: None)
  Receive Date: 20061016
  Receipt Date: 20061003
  Transmission Date: 20070319
  Serious: Yes (Hospitalization)
  Sender: FDA-Public Use
  Company Number: 2006121547

PATIENT
  Age: 62 Year
  Sex: Male

DRUGS (6)
  1. PHENYTOIN [Suspect]
     Dosage: 300 MG (300 MG, 1 IN 1 D); ORAL
     Route: 048
  2. DEXAMETHASONE TAB [Concomitant]
  3. LANSOPRAZOLE [Concomitant]
  4. LATANOPROST [Concomitant]
  5. ONDANSETRON [Concomitant]
  6. TIMOLOL MALEATE [Concomitant]

REACTIONS (5)
  - ANTICONVULSANT DRUG LEVEL ABOVE THERAPEUTIC [None]
  - DEHYDRATION [None]
  - DIZZINESS [None]
  - MALAISE [None]
  - VOMITING [None]
